FAERS Safety Report 6211583-3 (Version None)
Quarter: 2009Q2

REPORT INFORMATION
  Report Type: 
  Country: None (occurrence: None)
  Receive Date: 20090528
  Receipt Date: 20090521
  Transmission Date: 20091009
  Serious: Yes (Death, Life-Threatening, Other)
  Sender: FDA-Public Use
  Company Number: 2009JP001791

PATIENT
  Age: 59 Year
  Sex: Male

DRUGS (14)
  1. PROGRAF [Suspect]
     Indication: BONE MARROW TRANSPLANT
     Dosage: 1.6 G, UID/QD, IV NOS
     Route: 042
     Dates: start: 20080703
  2. PROGRAF [Suspect]
     Indication: BONE MARROW TRANSPLANT
  3. SOLU-MEDROL [Suspect]
     Indication: BONE MARROW TRANSPLANT
     Dosage: 500 MG, UID/QD, IV NOS; 2 MG/KG, IV NOS
     Route: 042
     Dates: start: 20080802, end: 20080804
  4. PREDNISOLONE [Suspect]
     Indication: BONE MARROW TRANSPLANT
     Dosage: SEE IMAGE
     Route: 042
     Dates: start: 20080805, end: 20080810
  5. PREDNISOLONE [Suspect]
     Indication: BONE MARROW TRANSPLANT
     Dosage: SEE IMAGE
     Route: 042
     Dates: start: 20080811, end: 20080821
  6. PREDNISOLONE [Suspect]
     Indication: BONE MARROW TRANSPLANT
     Dosage: SEE IMAGE
     Route: 042
     Dates: start: 20080822, end: 20080825
  7. PREDNISOLONE [Suspect]
     Indication: BONE MARROW TRANSPLANT
     Dosage: SEE IMAGE
     Route: 042
     Dates: start: 20080826, end: 20080902
  8. METHOTREXATE [Suspect]
     Indication: BONE MARROW TRANSPLANT
     Dosage: 15 MG, UID/QD, IV NOS; 10 MG, UID/QD, IV NOS
     Route: 042
     Dates: start: 20080705, end: 20080705
  9. METHOTREXATE [Suspect]
     Indication: BONE MARROW TRANSPLANT
     Dosage: 15 MG, UID/QD, IV NOS; 10 MG, UID/QD, IV NOS
     Route: 042
     Dates: start: 20080710, end: 20080715
  10. BUSULFAN (BUSULFAN) INJECTION [Concomitant]
  11. FLUDARABINE (FLUDARABINE) FORMULATION UNKNOWN [Concomitant]
  12. CELLCEPT (MYCOPHENOLATE MOFETIL) FORMULATION UNKNOWN [Concomitant]
  13. FUNGUARD (MICAFUNGIN) INJECTION [Concomitant]
  14. FRAGMIN (DALTEPARIN SODIUM) FORMULATION UNKNOWN [Concomitant]

REACTIONS (8)
  - ASCITES [None]
  - CYTOMEGALOVIRUS INFECTION [None]
  - DIARRHOEA [None]
  - GRAFT VERSUS HOST DISEASE [None]
  - PULMONARY MYCOSIS [None]
  - RASH [None]
  - RESPIRATORY FAILURE [None]
  - THROMBOTIC MICROANGIOPATHY [None]
